FAERS Safety Report 21585289 (Version 1)
Quarter: 2022Q4

REPORT INFORMATION
  Report Type: Spontaneous
  Country: DK (occurrence: DK)
  Receive Date: 20221111
  Receipt Date: 20221111
  Transmission Date: 20230113
  Serious: Yes (Hospitalization)
  Sender: FDA-Public Use
  Company Number: None

PATIENT
  Age: 39 Year
  Sex: Male
  Weight: 110 kg

DRUGS (2)
  1. RISPERIDONE [Suspect]
     Active Substance: RISPERIDONE
     Indication: Anxiety
     Dosage: STRENGTH: UNKNOWN, DOSAGE: 4 MG IN AN UNKNOWN INTERVAL, DURATION: 63 DAYS
     Route: 048
     Dates: start: 20160607, end: 20160809
  2. LEVOMEPROMAZINE [Suspect]
     Active Substance: LEVOMEPROMAZINE
     Indication: Schizophrenia
     Dosage: STRENGTH: UNKNOWN, FREQUENCY TIME : 1 DAY, UNIT DOSE: 15 MG, THERAPY START DATE: NASK
     Route: 065
     Dates: end: 20190205

REACTIONS (7)
  - Post-traumatic stress disorder [Not Recovered/Not Resolved]
  - Liver disorder [Unknown]
  - Face oedema [Unknown]
  - Skin disorder [Unknown]
  - Stress [Not Recovered/Not Resolved]
  - Dyspepsia [Unknown]
  - Constipation [Unknown]

NARRATIVE: CASE EVENT DATE: 20170507
